FAERS Safety Report 5324866-6 (Version None)
Quarter: 2007Q2

REPORT INFORMATION
  Report Type: 
  Country: None (occurrence: None)
  Receive Date: 20070515
  Receipt Date: 20070509
  Transmission Date: 20071010
  Serious: Yes (Death, Other)
  Sender: FDA-Public Use
  Company Number: US-ELI_LILLY_AND_COMPANY-US200705002618

PATIENT
  Age: 23 Year
  Sex: Female

DRUGS (3)
  1. XIGRIS [Suspect]
     Indication: SEPSIS
     Route: 042
     Dates: start: 20070101, end: 20070101
  2. LEVOPHED [Concomitant]
  3. VANCOMYCIN HYDROCHLORIDE [Concomitant]

REACTIONS (2)
  - DEATH [None]
  - SEPTIC EMBOLUS [None]
